FAERS Safety Report 20635360 (Version 2)
Quarter: 2022Q2

REPORT INFORMATION
  Report Type: Report from Study
  Country: US (occurrence: US)
  Receive Date: 20220325
  Receipt Date: 20220624
  Transmission Date: 20220721
  Serious: Yes (Hospitalization, Other)
  Sender: FDA-Public Use
  Company Number: US-TAKEDA-2022TUS016948

PATIENT
  Age: 75 Year
  Sex: Male

DRUGS (16)
  1. TEDUGLUTIDE [Suspect]
     Active Substance: TEDUGLUTIDE
     Indication: Short-bowel syndrome
     Dosage: 1.7 MILLIGRAM, QD
     Route: 042
     Dates: start: 20200816
  2. TEDUGLUTIDE [Suspect]
     Active Substance: TEDUGLUTIDE
     Indication: Short-bowel syndrome
     Dosage: 1.7 MILLIGRAM, QD
     Route: 042
     Dates: start: 20200816
  3. TEDUGLUTIDE [Suspect]
     Active Substance: TEDUGLUTIDE
     Indication: Short-bowel syndrome
     Dosage: 1.7 MILLIGRAM, QD
     Route: 042
     Dates: start: 20200816
  4. TEDUGLUTIDE [Suspect]
     Active Substance: TEDUGLUTIDE
     Indication: Short-bowel syndrome
     Dosage: 1.7 MILLIGRAM, QD
     Route: 042
     Dates: start: 20200816
  5. FLUCONAZOLE [Concomitant]
     Active Substance: FLUCONAZOLE
     Indication: Bladder catheterisation
     Dosage: 5 UNK
     Route: 042
     Dates: start: 20211126, end: 20211202
  6. ALBUTEROL [Concomitant]
     Active Substance: ALBUTEROL
     Indication: COVID-19
     Dosage: 90 MILLIGRAM, Q6HR
     Route: 065
     Dates: start: 20211128
  7. HEPARIN [Concomitant]
     Active Substance: HEPARIN SODIUM
     Indication: Prophylaxis
     Dosage: 5000 INTERNATIONAL UNIT, Q12H
     Route: 042
     Dates: start: 20220214, end: 20220215
  8. ACETAMINOPHEN [Concomitant]
     Active Substance: ACETAMINOPHEN
     Indication: Pain
     Dosage: 650 MILLIGRAM, Q4HR
     Route: 048
     Dates: start: 20220214
  9. NIFEDIPINE [Concomitant]
     Active Substance: NIFEDIPINE
     Indication: Hypertension
     Dosage: 30 MILLIGRAM, QD
     Route: 048
     Dates: start: 20220221
  10. LOSARTAN [Concomitant]
     Active Substance: LOSARTAN
     Indication: Hypertension
     Dosage: 50 MILLIGRAM
     Route: 065
  11. VITAMIN D3 [Concomitant]
     Active Substance: CHOLECALCIFEROL
     Indication: Hypovitaminosis
     Dosage: 300 INTERNATIONAL UNIT, BID
     Route: 048
     Dates: start: 20210922
  12. VITAMIN D3 [Concomitant]
     Active Substance: CHOLECALCIFEROL
     Indication: Mineral deficiency
  13. VORICONAZOLE [Concomitant]
     Active Substance: VORICONAZOLE
     Indication: Endophthalmitis
     Dosage: 0.1 MILLIGRAM
     Route: 058
     Dates: start: 20210316, end: 20210316
  14. NICOTINAMIDE [Concomitant]
     Active Substance: NIACINAMIDE
     Indication: Hypovitaminosis
     Dosage: 500 MILLIGRAM, BID
     Route: 048
     Dates: start: 20181008
  15. APIXABAN [Concomitant]
     Active Substance: APIXABAN
     Indication: Atrial fibrillation
     Dosage: 0.05 MILLIGRAM, QD
     Route: 048
     Dates: start: 20220216
  16. APIXABAN [Concomitant]
     Active Substance: APIXABAN
     Dosage: 5 MILLIGRAM, BID
     Route: 048
     Dates: start: 20210211

REACTIONS (4)
  - Thrombocytopenia [Recovered/Resolved]
  - COVID-19 [Recovered/Resolved]
  - Leukopenia [Recovered/Resolved]
  - Systemic inflammatory response syndrome [Recovered/Resolved]

NARRATIVE: CASE EVENT DATE: 20220214
